FAERS Safety Report 9240990 (Version 1)
Quarter: 2013Q1

REPORT INFORMATION
  Report Type: Spontaneous
  Country: US (occurrence: None)
  Receive Date: 20121120
  Receipt Date: 20121120
  Transmission Date: 20140127
  Serious: No
  Sender: FDA-Public Use
  Company Number: 1000039383

PATIENT
  Age: 49 Year
  Sex: Female

DRUGS (8)
  1. VIIBRYD [Suspect]
     Indication: DEPRESSION
     Route: 048
     Dates: start: 201209, end: 201209
  2. VIIBRYD [Suspect]
     Indication: BIPOLAR DISORDER
     Route: 048
     Dates: start: 201209, end: 201209
  3. TRAMADOL (TRAMADOL) (TRAMDOL) [Concomitant]
  4. ADDERALL (OBETROL) (OBETROL) [Concomitant]
  5. TRILFON (TRILAFON) (TRILAFON) [Concomitant]
  6. TRAZADONE (RTRAZADONE) (TRAZADONE) [Concomitant]
  7. KLONOPIN (CLONAZEPAM )(CLONAZEPAM) [Concomitant]
  8. NUCYNTA (TAPENTADOL HYDROCHLORIDE) (TAPENTASOL HYDROCHLORIDE) [Concomitant]

REACTIONS (2)
  - Dry mouth [None]
  - Stomatitis [None]
